FAERS Safety Report 12321839 (Version 1)
Quarter: 2016Q2

REPORT INFORMATION
  Report Type: Spontaneous
  Country: US (occurrence: US)
  Receive Date: 20160502
  Receipt Date: 20160502
  Transmission Date: 20160815
  Serious: No
  Sender: FDA-Public Use
  Company Number: US-GLAXOSMITHKLINE-US2016060324

PATIENT
  Sex: Female

DRUGS (3)
  1. BUPROPION TABLET [Suspect]
     Active Substance: BUPROPION
     Indication: INAPPROPRIATE AFFECT
     Route: 048
  2. ZOLOFT [Concomitant]
     Active Substance: SERTRALINE HYDROCHLORIDE
  3. NORVASC [Concomitant]
     Active Substance: AMLODIPINE BESYLATE

REACTIONS (3)
  - Headache [Recovered/Resolved]
  - Off label use [Unknown]
  - Poor quality sleep [Recovered/Resolved]
